FAERS Safety Report 8194098 (Version 2)
Quarter: 2013Q2

REPORT INFORMATION
  Report Type: Report from Study
  Country: US (occurrence: US)
  Receive Date: 20111021
  Receipt Date: 20130530
  Transmission Date: 20140414
  Serious: Yes (Death)
  Sender: FDA-Public Use
  Company Number: US-ELI_LILLY_AND_COMPANY-US201110004380

PATIENT
  Age: 73 Year
  Sex: Female
  Weight: 95.5 kg

DRUGS (24)
  1. GEMCITABINE HYDROCHLORIDE [Suspect]
     Indication: NON-SMALL CELL LUNG CANCER
     Dosage: 1000 MG/M2, DAYS 1 AND 8
     Route: 042
     Dates: start: 20110921
  2. CARBOPLATIN [Suspect]
     Indication: NON-SMALL CELL LUNG CANCER
     Dosage: 5.5 AUC, DAY 1
     Route: 042
     Dates: start: 20110921
  3. OTHER PHARMA COMPANY INV DRUG [Suspect]
     Indication: NON-SMALL CELL LUNG CANCER
     Dosage: 400 MG, BID, DAYS 1 TO 21 FOR CYCLES 1-6
     Route: 048
     Dates: start: 20110921
  4. ALOXI [Concomitant]
     Dosage: UNK
  5. AMITRIPTYLINE [Concomitant]
     Dosage: UNK
  6. AMOXICILLIN [Concomitant]
     Dosage: UNK
  7. ACETYLSALICYLIC ACID [Concomitant]
     Dosage: UNK
  8. BISOPROLOL [Concomitant]
     Dosage: UNK
  9. CALCIUM WITH VITAMIN D [Concomitant]
     Dosage: UNK
  10. FAMOTIDINE [Concomitant]
     Dosage: UNK
  11. HYDROCODONE [Concomitant]
     Dosage: UNK
  12. CODEINE PHOSPHATE W/GUAIFENESIN [Concomitant]
     Dosage: UNK
  13. COMPAZINE [Concomitant]
     Dosage: UNK
  14. LEVOTHYROXINE [Concomitant]
     Dosage: UNK
  15. LORATADINE [Concomitant]
     Dosage: UNK
  16. LOVASTATIN [Concomitant]
     Dosage: UNK
  17. MAGNESIUM GLUCONATE [Concomitant]
     Dosage: UNK
  18. MULTIVITAMINS [Concomitant]
     Dosage: UNK
  19. NITROGLYCERINE [Concomitant]
     Dosage: UNK
  20. OXYBUTYNIN [Concomitant]
     Dosage: UNK
  21. TRANDOLAPRIL [Concomitant]
     Dosage: UNK
  22. DEXAMETHASONE [Concomitant]
     Dosage: UNK
  23. EPINEPHRINE [Concomitant]
     Dosage: UNK
  24. SPIRIVA [Concomitant]
     Dosage: UNK

REACTIONS (3)
  - Death [Fatal]
  - Pulmonary embolism [Fatal]
  - Myocardial infarction [Fatal]
